FAERS Safety Report 8408494 (Version 3)
Quarter: 2012Q4

REPORT INFORMATION
  Report Type: 
  Country: US (occurrence: US)
  Receive Date: 20120216
  Receipt Date: 20121005
  Transmission Date: 20130627
  Serious: Yes (Hospitalization)
  Sender: FDA-Public Use
  Company Number: US-US-EMD SERONO, INC.-7112315

PATIENT
  Age: 59 None
  Sex: Male
  Weight: 73 kg

DRUGS (8)
  1. REBIF [Suspect]
     Indication: MULTIPLE SCLEROSIS
     Route: 058
     Dates: start: 20050324
  2. AMPYRA [Suspect]
     Indication: MULTIPLE SCLEROSIS
     Dates: end: 2012
  3. LEVOTHYROXINE [Concomitant]
     Indication: THYROID DISORDER
  4. PROVIGIL [Concomitant]
     Indication: FATIGUE
  5. BACLOFEN [Concomitant]
     Indication: MUSCLE SPASTICITY
  6. TIZANIDINE [Concomitant]
     Indication: MUSCLE SPASTICITY
  7. CYMBALTA [Concomitant]
     Indication: DEPRESSION
  8. FLOMAX [Concomitant]
     Indication: PRODUCT USED FOR UNKNOWN INDICATION

REACTIONS (3)
  - Convulsion [Recovered/Resolved]
  - Conjunctivitis infective [Recovered/Resolved]
  - Hypersomnia [Not Recovered/Not Resolved]
